FAERS Safety Report 21375909 (Version 1)
Quarter: 2022Q3

REPORT INFORMATION
  Report Type: Report from Study
  Country: IL (occurrence: None)
  Receive Date: 20220926
  Receipt Date: 20220926
  Transmission Date: 20221026
  Serious: Yes (Other)
  Sender: FDA-Public Use
  Company Number: IL-Merck Healthcare KGaA-9352569

PATIENT
  Age: 34 Year
  Sex: Female
  Weight: 47 kg

DRUGS (3)
  1. MAVENCLAD [Suspect]
     Active Substance: CLADRIBINE
     Indication: Multiple sclerosis
     Dosage: MONTH ONE THERAPY
     Route: 048
     Dates: start: 20210713
  2. MAVENCLAD [Suspect]
     Active Substance: CLADRIBINE
     Dosage: MONTH TWO THERAPY
     Route: 048
  3. ISOTRETINOIN [Concomitant]
     Active Substance: ISOTRETINOIN
     Indication: Acne
     Dates: start: 20220824

REACTIONS (1)
  - Plasmapheresis [Unknown]

NARRATIVE: CASE EVENT DATE: 20220915
